FAERS Safety Report 8329299-6 (Version None)
Quarter: 2012Q2

REPORT INFORMATION
  Report Type: 
  Country: None (occurrence: None)
  Receive Date: 20120502
  Receipt Date: 20110506
  Transmission Date: 20120825
  Serious: No
  Sender: FDA-Public Use
  Company Number: US-ASTRAZENECA-2011SE27307

PATIENT
  Age: 81 Year
  Sex: Female
  Weight: 60.8 kg

DRUGS (3)
  1. FASLODEX [Suspect]
     Route: 030
  2. WATER PILL [Concomitant]
     Indication: FLUID RETENTION
  3. LOVENOX [Concomitant]
     Indication: PULMONARY THROMBOSIS

REACTIONS (2)
  - FATIGUE [None]
  - DYSPNOEA [None]
